FAERS Safety Report 15677724 (Version 2)
Quarter: 2019Q1

REPORT INFORMATION
  Report Type: Report from Study
  Country: JP (occurrence: JP)
  Receive Date: 20181130
  Receipt Date: 20190329
  Transmission Date: 20190417
  Serious: Yes (Life-Threatening, Hospitalization)
  Sender: FDA-Public Use
  Company Number: JP-BEH-2018097249

PATIENT
  Age: 72 Year
  Sex: Male
  Weight: 65.4 kg

DRUGS (16)
  1. SANGLOPOR [Concomitant]
     Active Substance: HUMAN IMMUNOGLOBULIN G
     Indication: OSTEOMYELITIS
  2. WARFARIN POTASSIUM [Concomitant]
     Active Substance: WARFARIN POTASSIUM
     Indication: PROPHYLAXIS
     Dosage: 2.5 MG, UNK
     Route: 048
     Dates: start: 20180627
  3. ZYVOX [Concomitant]
     Active Substance: LINEZOLID
     Indication: EXTRADURAL ABSCESS
     Dosage: UNK
     Route: 065
     Dates: start: 20180620, end: 20180702
  4. HEPARIN [Concomitant]
     Active Substance: HEPARIN SODIUM
     Indication: PROPHYLAXIS
  5. MEROPENEM                          /01250502/ [Concomitant]
     Active Substance: MEROPENEM
     Indication: EXTRADURAL ABSCESS
     Dosage: UNK
     Route: 065
     Dates: start: 20180620, end: 20180627
  6. MEROPENEM                          /01250502/ [Concomitant]
     Active Substance: MEROPENEM
     Indication: OSTEOMYELITIS
  7. BERIPLEX P/N [Suspect]
     Active Substance: COAGULATION FACTOR IX HUMAN\COAGULATION FACTOR VII HUMAN\COAGULATION FACTOR X HUMAN\PROTEIN C\PROTEIN S HUMAN\PROTHROMBIN
     Indication: SURGERY
     Dosage: 1000 IU, UNK
     Route: 042
     Dates: start: 20180620
  8. GASTER [Concomitant]
     Active Substance: FAMOTIDINE
     Indication: PROPHYLAXIS
     Dosage: UNK
     Route: 065
     Dates: start: 20180620, end: 20180621
  9. SANGLOPOR [Concomitant]
     Active Substance: HUMAN IMMUNOGLOBULIN G
     Indication: EXTRADURAL ABSCESS
     Dosage: UNK
     Route: 065
     Dates: start: 20180621, end: 20181023
  10. KAYTWO [Concomitant]
     Active Substance: MENATETRENONE
     Indication: ANTICOAGULANT THERAPY
     Dosage: 20 MG, TOT
     Route: 065
     Dates: start: 20180620, end: 20180620
  11. ROPION [Concomitant]
     Active Substance: FLURBIPROFEN AXETIL
     Indication: PROCEDURAL PAIN
     Dosage: UNK
     Route: 065
     Dates: start: 20180621, end: 20180621
  12. ZYVOX [Concomitant]
     Active Substance: LINEZOLID
     Indication: OSTEOMYELITIS
  13. WARFARIN POTASSIUM [Concomitant]
     Active Substance: WARFARIN POTASSIUM
     Indication: ATRIAL FIBRILLATION
     Dosage: 2.5 MG, UNK
     Route: 048
     Dates: end: 20180619
  14. HEPARIN [Concomitant]
     Active Substance: HEPARIN SODIUM
     Indication: ATRIAL FIBRILLATION
     Dosage: 10000 UNK, UNK
     Route: 065
     Dates: start: 20180623, end: 20180704
  15. BISOPROLOL FUMARATE. [Concomitant]
     Active Substance: BISOPROLOL FUMARATE
     Route: 048
  16. FOSTOIN [Concomitant]
     Active Substance: FOSPHENYTOIN SODIUM
     Indication: PROPHYLAXIS
     Dosage: UNK
     Route: 065
     Dates: start: 20180620, end: 20180620

REACTIONS (2)
  - Disseminated intravascular coagulation [Recovered/Resolved]
  - Muscle abscess [Recovered/Resolved]

NARRATIVE: CASE EVENT DATE: 20180702
